FAERS Safety Report 13376786 (Version 1)
Quarter: 2017Q1

REPORT INFORMATION
  Report Type: Spontaneous
  Country: US (occurrence: US)
  Receive Date: 20170327
  Receipt Date: 20170327
  Transmission Date: 20170429
  Serious: Yes (Disabling)
  Sender: FDA-Public Use
  Company Number: None

PATIENT
  Age: 57 Year
  Sex: Male
  Weight: 127 kg

DRUGS (1)
  1. KETOROLAC [Suspect]
     Active Substance: KETOROLAC\KETOROLAC TROMETHAMINE
     Indication: BACK PAIN
     Dosage: ?          OTHER FREQUENCY:ONCE;?
     Route: 030

REACTIONS (2)
  - Injection site hypoaesthesia [None]
  - Injection site paraesthesia [None]

NARRATIVE: CASE EVENT DATE: 20170326
